FAERS Safety Report 12545217 (Version 2)
Quarter: 2017Q3

REPORT INFORMATION
  Report Type: Spontaneous
  Country: US (occurrence: US)
  Receive Date: 20160711
  Receipt Date: 20170725
  Transmission Date: 20171127
  Serious: No
  Sender: FDA-Public Use
  Company Number: US-PFIZER INC-2016330020

PATIENT
  Age: 73 Year
  Sex: Female
  Weight: 102 kg

DRUGS (22)
  1. IBRANCE [Suspect]
     Active Substance: PALBOCICLIB
     Dosage: 125 MG, DAILY
     Dates: start: 20170710, end: 20170710
  2. LISINOPRIL. [Concomitant]
     Active Substance: LISINOPRIL
     Dosage: UNK
  3. VITAMIN D [Concomitant]
     Active Substance: CHOLECALCIFEROL
     Dosage: UNK
  4. IBRANCE [Suspect]
     Active Substance: PALBOCICLIB
     Dosage: UNK
     Dates: start: 20160711
  5. IBRANCE [Suspect]
     Active Substance: PALBOCICLIB
     Indication: BREAST CANCER
     Dosage: 1 DF, CYCLIC (1 CAPSULES BY MOUTH DAILY 21 DAYS ON 7 DAYS OFF)
     Route: 048
  6. IBRANCE [Suspect]
     Active Substance: PALBOCICLIB
     Dosage: 125 MG, CYCLIC (DAILY 21 DAYS ON 7 DAYS OFF), 21 DAYS ON AND 7
     Route: 048
     Dates: start: 20170712
  7. IBRANCE [Suspect]
     Active Substance: PALBOCICLIB
     Dosage: 75 MG, UNK (28 DAY SUPPLY)
  8. IBRANCE [Suspect]
     Active Substance: PALBOCICLIB
     Dosage: 125 MG, DAILY
     Dates: start: 20161208, end: 20170710
  9. ATARAX [Concomitant]
     Active Substance: HYDROXYZINE HYDROCHLORIDE
     Indication: PRURITUS
     Dosage: 25 MG, AS NEEDED (3 (THREE TIMES A DAY)
     Route: 048
     Dates: start: 20161123
  10. ZOFRAN [Concomitant]
     Active Substance: ONDANSETRON HYDROCHLORIDE
     Indication: VOMITING
  11. ZOVIRAX [Concomitant]
     Active Substance: ACYCLOVIR
     Dosage: 800 MG, 2X/DAY (EVERY 12 HOURS FOR 7 DAYS)
     Route: 048
     Dates: start: 20170209
  12. MEGACE [Suspect]
     Active Substance: MEGESTROL ACETATE
     Indication: BREAST CANCER
     Dosage: UNK
     Dates: start: 20150306
  13. ASPIRIN. [Concomitant]
     Active Substance: ASPIRIN
     Dosage: 81 MG, DAILY
     Route: 048
  14. TYLENOL [Concomitant]
     Active Substance: ACETAMINOPHEN
     Indication: PAIN
     Dosage: 500 MG, AS NEEDED (EVERY SIX HOURS)
     Route: 048
  15. VITAMIN D [Concomitant]
     Active Substance: CHOLECALCIFEROL
     Dosage: UNK, 2X/DAY
     Route: 048
  16. ZOFRAN [Concomitant]
     Active Substance: ONDANSETRON HYDROCHLORIDE
     Indication: NAUSEA
     Dosage: 4 MG, AS NEEDED (EVERY SIX HOURS)
     Route: 048
     Dates: start: 20160725
  17. IBRANCE [Suspect]
     Active Substance: PALBOCICLIB
     Dosage: 125 MG, DAILY
     Dates: start: 20170710, end: 20170712
  18. LETROZOLE. [Concomitant]
     Active Substance: LETROZOLE
     Dosage: UNK
  19. FEMARA [Concomitant]
     Active Substance: LETROZOLE
     Dosage: 2.5 MG, DAILY
     Route: 048
     Dates: start: 20161220
  20. NORCO [Concomitant]
     Active Substance: ACETAMINOPHEN\HYDROCODONE BITARTRATE
     Indication: PAIN
     Dosage: 1 DF, AS NEEDED (EVERY SIX HOUR) (HYDROCODONE BITARTRATE-5 MG, PARACETAMOL-325 MG)
     Route: 048
     Dates: start: 20161103
  21. IBUPROFEN. [Concomitant]
     Active Substance: IBUPROFEN
     Dosage: UNK
  22. SARNA [Concomitant]
     Indication: PRURITUS
     Dosage: UNK, AS NEEDED (CAMPHOR 0.5%, MENTHOL 0.5%)
     Route: 061
     Dates: start: 20161123

REACTIONS (2)
  - Metastases to bone [Unknown]
  - Disease progression [Unknown]
